FAERS Safety Report 6758505-4 (Version None)
Quarter: 2010Q2

REPORT INFORMATION
  Report Type: 
  Country: None (occurrence: None)
  Receive Date: 20100607
  Receipt Date: 20100528
  Transmission Date: 20101027
  Serious: Yes (Hospitalization)
  Sender: FDA-Public Use
  Company Number: B0584759A

PATIENT
  Sex: Male

DRUGS (2)
  1. AVODART [Suspect]
     Indication: BENIGN PROSTATIC HYPERPLASIA
     Dosage: .5MG PER DAY
     Route: 048
     Dates: start: 20080829, end: 20081214
  2. OMNIC [Concomitant]
     Indication: URINARY TRACT DISORDER
     Dosage: .4MG PER DAY
     Route: 048
     Dates: start: 20080101

REACTIONS (2)
  - DIZZINESS [None]
  - GAIT DISTURBANCE [None]
